FAERS Safety Report 5387313-4 (Version None)
Quarter: 2007Q3

REPORT INFORMATION
  Report Type: 
  Country: None (occurrence: None)
  Receive Date: 20070716
  Receipt Date: 20070705
  Transmission Date: 20080115
  Serious: Yes (Other)
  Sender: FDA-Public Use
  Company Number: PHEH2007US09543

PATIENT
  Age: 17 Year
  Sex: Male

DRUGS (2)
  1. EXJADE [Suspect]
     Indication: IRON OVERLOAD
     Dosage: 500 MG, QD
     Route: 048
     Dates: start: 20060501, end: 20060801
  2. EXJADE [Suspect]
     Dosage: 1 G, QD
     Route: 048
     Dates: start: 20060801

REACTIONS (3)
  - OPTIC NEURITIS [None]
  - RENAL TUBULAR ACIDOSIS [None]
  - SCOTOMA [None]
